FAERS Safety Report 9206002 (Version 1)
Quarter: 2013Q2

REPORT INFORMATION
  Report Type: Spontaneous
  Country: US (occurrence: None)
  Receive Date: 20130401
  Receipt Date: 20130401
  Transmission Date: 20140414
  Serious: Yes (Hospitalization)
  Sender: FDA-Public Use
  Company Number: 1303-367

PATIENT
  Age: 83 Year
  Sex: Male

DRUGS (1)
  1. EYLEA (AFLIBERCEPT)(INJECTION)(AFLIBERCEPT) [Suspect]
     Indication: MACULAR DEGENERATION
     Dates: start: 20130306

REACTIONS (2)
  - Bronchitis [None]
  - Pneumonia [None]
